FAERS Safety Report 8909731 (Version 1)
Quarter: 2012Q4

REPORT INFORMATION
  Report Type: Spontaneous
  Country: US (occurrence: None)
  Receive Date: 20121109
  Receipt Date: 20121109
  Transmission Date: 20130627
  Serious: Yes (Hospitalization)
  Sender: FDA-Public Use
  Company Number: QSC-2012-0285

PATIENT
  Sex: Male

DRUGS (1)
  1. H.P. ACTHAR [Suspect]
     Indication: NEPHROTIC SYNDROME
     Dosage: UNK

REACTIONS (2)
  - Adrenal disorder [None]
  - Blood electrolytes decreased [None]
